FAERS Safety Report 6491778-4 (Version None)
Quarter: 2009Q4

REPORT INFORMATION
  Report Type: 
  Country: None (occurrence: None)
  Receive Date: 20091210
  Receipt Date: 20091202
  Transmission Date: 20100525
  Serious: Yes (Hospitalization, Other)
  Sender: FDA-Public Use
  Company Number: 2009SP033737

PATIENT
  Age: 43 Year
  Sex: Female

DRUGS (4)
  1. SAPHRIS [Suspect]
     Indication: DRUG USE FOR UNKNOWN INDICATION
     Dosage: 5 MG;BID;SL
     Route: 060
     Dates: start: 20091023, end: 20091024
  2. SEROQUEL [Concomitant]
  3. CYMBALTA [Concomitant]
  4. ATIVAN [Concomitant]

REACTIONS (5)
  - BLOOD PRESSURE INCREASED [None]
  - FALL [None]
  - HALLUCINATION, AUDITORY [None]
  - HEAD INJURY [None]
  - SYNCOPE [None]
